FAERS Safety Report 13513468 (Version 1)
Quarter: 2017Q2

REPORT INFORMATION
  Report Type: Spontaneous
  Country: ES (occurrence: ES)
  Receive Date: 20170504
  Receipt Date: 20170504
  Transmission Date: 20170830
  Serious: Yes (Other)
  Sender: FDA-Public Use
  Company Number: ES-SUN PHARMACEUTICAL INDUSTRIES LTD-2017RR-138366

PATIENT
  Age: 51 Year
  Sex: Female

DRUGS (5)
  1. TERIPARATIDE [Suspect]
     Active Substance: TERIPARATIDE
     Indication: OSTEOPOROSIS
     Dosage: 20 MCG, DAILY
     Route: 058
  2. 25-HYDROXYVITAMIN D [Suspect]
     Active Substance: 25-HYDROXYERGOCALCIFEROL-
     Indication: OSTEOPOROSIS
     Dosage: 32000 IU, MONTHLY, 16000 2 TIMES A MONTH
     Route: 048
  3. 25-HYDROXYVITAMIN D [Suspect]
     Active Substance: 25-HYDROXYERGOCALCIFEROL-
     Dosage: 16000 IU, MONTHLY
     Route: 048
  4. PAMIDRONATE [Suspect]
     Active Substance: PAMIDRONATE DISODIUM
     Indication: CALCIPHYLAXIS
     Dosage: 30 MG, EVERY 10 DAYS
     Route: 042
     Dates: start: 201209, end: 201210
  5. CALCIUM [Suspect]
     Active Substance: CALCIUM
     Indication: OSTEOPOROSIS
     Dosage: 500 MG, DAILY
     Route: 048

REACTIONS (2)
  - Calciphylaxis [Recovering/Resolving]
  - Drug ineffective [Unknown]
